FAERS Safety Report 5775278-2 (Version None)
Quarter: 2008Q2

REPORT INFORMATION
  Report Type: 
  Country: None (occurrence: None)
  Receive Date: 20080617
  Receipt Date: 20080610
  Transmission Date: 20081010
  Serious: Yes (Death, Life-Threatening)
  Sender: FDA-Public Use
  Company Number: US-BAYER-200825182NA

PATIENT
  Age: 43 Year
  Sex: Female
  Weight: 63 kg

DRUGS (4)
  1. SORAFENIB OR PLACEBO [Suspect]
     Indication: BREAST CANCER METASTATIC
     Dosage: TOTAL DAILY DOSE: 800 MG  UNIT DOSE: 200 MG
     Route: 048
     Dates: start: 20080513, end: 20080605
  2. GEMCITABINE [Suspect]
     Indication: BREAST CANCER METASTATIC
     Dosage: AS USED: 1000 MG/M2
     Route: 042
     Dates: start: 20080513, end: 20080513
  3. GEMCITABINE [Suspect]
     Dosage: AS USED: 1000 MG/M2
     Route: 042
     Dates: start: 20080520, end: 20080520
  4. GEMCITABINE [Suspect]
     Route: 042
     Dates: start: 20080603, end: 20080603

REACTIONS (1)
  - CARDIAC ARREST [None]
